FAERS Safety Report 12868872 (Version 4)
Quarter: 2018Q1

REPORT INFORMATION
  Report Type: Report from Study
  Country: US (occurrence: US)
  Receive Date: 20161020
  Receipt Date: 20180105
  Transmission Date: 20180508
  Serious: No
  Sender: FDA-Public Use
  Company Number: US-AMGEN-USASL2016095777

PATIENT
  Age: 54 Year
  Sex: Female
  Weight: 144.67 kg

DRUGS (8)
  1. PRAVACHOL [Concomitant]
     Active Substance: PRAVASTATIN SODIUM
  2. LIVALO [Concomitant]
     Active Substance: PITAVASTATIN CALCIUM
  3. VYTORIN [Concomitant]
     Active Substance: EZETIMIBE\SIMVASTATIN
  4. TRICOR [Concomitant]
     Active Substance: FENOFIBRATE
  5. REPATHA [Suspect]
     Active Substance: EVOLOCUMAB
     Indication: HYPERCHOLESTEROLAEMIA
     Dosage: 140 MG/ML, Q2WK
     Route: 058
     Dates: start: 20160708
  6. NIACIN. [Concomitant]
     Active Substance: NIACIN
  7. CRESTOR [Concomitant]
     Active Substance: ROSUVASTATIN CALCIUM
  8. LIPITOR [Concomitant]
     Active Substance: ATORVASTATIN CALCIUM

REACTIONS (7)
  - Dry mouth [Unknown]
  - Injection site pain [Unknown]
  - Injection site haemorrhage [Unknown]
  - Sinus disorder [Unknown]
  - Dry eye [Unknown]
  - Dysgeusia [Unknown]
  - Injection site extravasation [Unknown]
